FAERS Safety Report 9768044 (Version 2)
Quarter: 2013Q4

REPORT INFORMATION
  Report Type: Spontaneous
  Country: CN (occurrence: CN)
  Receive Date: 20131217
  Receipt Date: 20131217
  Transmission Date: 20140711
  Serious: Yes (Hospitalization)
  Sender: FDA-Public Use
  Company Number: CN-PFIZER INC-2013352632

PATIENT
  Age: 55 Year
  Sex: Male
  Weight: 80 kg

DRUGS (7)
  1. LIPITOR [Suspect]
     Indication: CARDIOVASCULAR DISORDER
     Dosage: 20 MG, DAILY
     Route: 048
  2. LIPITOR [Suspect]
     Indication: CEREBRAL INFARCTION
  3. LIPITOR [Suspect]
     Indication: HYPERLIPIDAEMIA
  4. ACETYLSALICYLIC ACID [Concomitant]
     Dosage: UNK
     Route: 048
  5. METFORMIN [Concomitant]
     Dosage: UNK
     Route: 048
  6. APROVEL [Concomitant]
     Dosage: UNK
     Route: 048
  7. NOVOLIN 30R [Concomitant]
     Route: 011

REACTIONS (2)
  - Cardiac disorder [Unknown]
  - Blood creatine phosphokinase increased [Recovering/Resolving]
